FAERS Safety Report 23383068 (Version 6)
Quarter: 2024Q3

REPORT INFORMATION
  Report Type: Spontaneous
  Country: US (occurrence: US)
  Receive Date: 20240109
  Receipt Date: 20240919
  Transmission Date: 20241016
  Serious: Yes (Other)
  Sender: PFIZER
  Company Number: US-PFIZER INC-2020349680

PATIENT
  Age: 74 Year
  Sex: Female
  Weight: 67.129 kg

DRUGS (13)
  1. PREMPRO [Suspect]
     Active Substance: ESTROGENS, CONJUGATED\MEDROXYPROGESTERONE ACETATE
     Indication: Menopause
     Dosage: UNK, 1X/DAY (0.45/1.5MG)
     Route: 048
  2. PREMPRO [Suspect]
     Active Substance: ESTROGENS, CONJUGATED\MEDROXYPROGESTERONE ACETATE
     Dosage: 0.2 MG  (0.30/1.5 MG)
  3. PREMPRO [Suspect]
     Active Substance: ESTROGENS, CONJUGATED\MEDROXYPROGESTERONE ACETATE
     Dosage: UNK, 1X/DAY (0.3MG/1.5MG, IN THE MORNING)
     Dates: start: 20230914
  4. PREMPRO [Suspect]
     Active Substance: ESTROGENS, CONJUGATED\MEDROXYPROGESTERONE ACETATE
     Dosage: 1 TAB .3 MG /1.5/ONCE DAILY
     Route: 048
     Dates: start: 20240118, end: 20240301
  5. PREMPRO [Suspect]
     Active Substance: ESTROGENS, CONJUGATED\MEDROXYPROGESTERONE ACETATE
     Dosage: BACK TO ORIGINAL PRESCRIPTION OF .45
     Dates: start: 20240301
  6. PREMPRO [Suspect]
     Active Substance: ESTROGENS, CONJUGATED\MEDROXYPROGESTERONE ACETATE
     Dosage: 0.45 - 1.5 MG TABLET 1 TABLET ORALLY ONCE A DAY
     Route: 048
  7. CENTRUM SILVER [ASCORBIC ACID;CALCIUM;MINERALS NOS;RETINOL;TOCOPHERYL [Concomitant]
     Dosage: UNK
  8. METOPROLOL [Concomitant]
     Active Substance: METOPROLOL
     Indication: Cardiac disorder
     Dosage: 25 MG, DAILY
     Route: 048
     Dates: start: 20160120
  9. METOPROLOL [Concomitant]
     Active Substance: METOPROLOL
     Indication: Hypertension
  10. LOSARTAN [Concomitant]
     Active Substance: LOSARTAN\LOSARTAN POTASSIUM
     Indication: Cardiac disorder
     Dosage: 25 MG
     Route: 048
     Dates: start: 20160120
  11. LOSARTAN [Concomitant]
     Active Substance: LOSARTAN\LOSARTAN POTASSIUM
     Indication: Hypertension
  12. ATORVASTATIN [Concomitant]
     Active Substance: ATORVASTATIN
     Indication: Cardiac disorder
     Dosage: 10 MG
     Route: 048
     Dates: start: 20160120
  13. ATORVASTATIN [Concomitant]
     Active Substance: ATORVASTATIN
     Indication: Hypercholesterolaemia
     Dosage: 20 MG, DAILY

REACTIONS (21)
  - Loss of consciousness [Unknown]
  - Renal impairment [Recovering/Resolving]
  - Fall [Unknown]
  - Head injury [Unknown]
  - Joint injury [Unknown]
  - Limb injury [Unknown]
  - Concussion [Unknown]
  - Hot flush [Recovering/Resolving]
  - Condition aggravated [Not Recovered/Not Resolved]
  - Fungal infection [Unknown]
  - Loss of personal independence in daily activities [Unknown]
  - Insomnia [Unknown]
  - Scalp haematoma [Unknown]
  - Vertigo [Recovering/Resolving]
  - Dyspnoea [Unknown]
  - Weight increased [Unknown]
  - Blood pressure increased [Unknown]
  - Liver function test increased [Unknown]
  - Back pain [Not Recovered/Not Resolved]
  - Stress [Recovering/Resolving]
  - Product prescribing error [Unknown]

NARRATIVE: CASE EVENT DATE: 20230101
